FAERS Safety Report 22651276 (Version 1)
Quarter: 2023Q2

REPORT INFORMATION
  Report Type: Spontaneous
  Country: US (occurrence: None)
  Receive Date: 20230627
  Receipt Date: 20230627
  Transmission Date: 20230722
  Serious: No
  Sender: FDA-Public Use
  Company Number: None

PATIENT
  Age: 39 Year
  Sex: Male
  Weight: 106.14 kg

DRUGS (1)
  1. REMICADE [Suspect]
     Active Substance: INFLIXIMAB
     Indication: Ankylosing spondylitis
     Dosage: INFUSE 700MG VIA INTRAVENOUSLY  EVERY 6 WEEKS AS DIRECTED.?
     Route: 042
     Dates: start: 202108

REACTIONS (3)
  - Infected cyst [None]
  - Localised infection [None]
  - Groin infection [None]
